FAERS Safety Report 19425724 (Version 1)
Quarter: 2021Q2

REPORT INFORMATION
  Report Type: Spontaneous
  Country: US (occurrence: US)
  Receive Date: 20210617
  Receipt Date: 20210617
  Transmission Date: 20210717
  Serious: No
  Sender: FDA-Public Use
  Company Number: US-SA-2021SA199433

PATIENT
  Sex: Female

DRUGS (2)
  1. STERILE WATER [Concomitant]
     Active Substance: WATER
     Dosage: 50MG
  2. LUMIZYME [Suspect]
     Active Substance: ALGLUCOSIDASE ALFA
     Dosage: 2500 MG

REACTIONS (2)
  - Product preparation error [Unknown]
  - Extra dose administered [Unknown]
